FAERS Safety Report 13068398 (Version 1)
Quarter: 2016Q4

REPORT INFORMATION
  Report Type: Spontaneous
  Country: US (occurrence: US)
  Receive Date: 20161228
  Receipt Date: 20161228
  Transmission Date: 20170207
  Serious: No
  Sender: FDA-Public Use
  Company Number: US-BAYER-2016-242639

PATIENT
  Sex: Female
  Weight: 59.86 kg

DRUGS (6)
  1. SOMAVERT [Suspect]
     Active Substance: PEGVISOMANT
     Indication: BLOOD GROWTH HORMONE ABNORMAL
     Dosage: 10 MG, EVERY THIRD DAY
  2. MIRALAX [Suspect]
     Active Substance: POLYETHYLENE GLYCOL 3350
     Dosage: UNK
  3. LEVOTHYROXINE. [Concomitant]
     Active Substance: LEVOTHYROXINE
     Dosage: 150 MG, QD
     Route: 048
  4. NUTRITIONAL SUPPLEMENT [Concomitant]
     Active Substance: DIETARY SUPPLEMENT
  5. SOMAVERT [Suspect]
     Active Substance: PEGVISOMANT
     Indication: BLOOD GROWTH HORMONE ABNORMAL
     Dosage: 10 MG, QD
  6. LAXATIVE [Concomitant]
     Active Substance: UNSPECIFIED INGREDIENT

REACTIONS (5)
  - Dry skin [None]
  - Drug ineffective [Not Recovered/Not Resolved]
  - Dry eye [None]
  - Eye pain [None]
  - Constipation [Not Recovered/Not Resolved]
